FAERS Safety Report 21330102 (Version 1)
Quarter: 2022Q3

REPORT INFORMATION
  Report Type: Spontaneous
  Country: AU (occurrence: AU)
  Receive Date: 20220913
  Receipt Date: 20220913
  Transmission Date: 20221026
  Serious: Yes (Hospitalization, Other)
  Sender: FDA-Public Use
  Company Number: AU-NOVARTISPH-NVSC2022AU204578

PATIENT
  Age: 36 Year
  Sex: Female

DRUGS (17)
  1. RITUXIMAB [Suspect]
     Active Substance: RITUXIMAB
     Indication: Product used for unknown indication
     Dosage: UNK, QW FOR 4 WEEKS
     Route: 065
     Dates: start: 201606
  2. RITUXIMAB [Suspect]
     Active Substance: RITUXIMAB
     Dosage: 600 MG, Q3MO
     Route: 065
     Dates: end: 201807
  3. RITUXIMAB [Suspect]
     Active Substance: RITUXIMAB
     Dosage: UNK
     Route: 065
     Dates: start: 201901
  4. MYCOPHENOLATE MOFETIL [Suspect]
     Active Substance: MYCOPHENOLATE MOFETIL
     Indication: Product used for unknown indication
     Dosage: 500 MG, BID
     Route: 065
     Dates: start: 201807
  5. MYCOPHENOLATE MOFETIL [Suspect]
     Active Substance: MYCOPHENOLATE MOFETIL
     Dosage: 1 G, BID
     Route: 065
     Dates: start: 201811
  6. DEXAMETHASONE [Suspect]
     Active Substance: DEXAMETHASONE
     Indication: Product used for unknown indication
     Dosage: UNK
     Route: 065
     Dates: start: 202201
  7. PREDNISONE [Suspect]
     Active Substance: PREDNISONE
     Indication: Product used for unknown indication
     Dosage: 10 MG, QD
     Route: 065
  8. PLASMA-PLEX [Suspect]
     Active Substance: PLASMA PROTEIN FRACTION (HUMAN)
     Indication: Product used for unknown indication
     Dosage: UNK, QMO
     Route: 065
     Dates: start: 201909
  9. PLASMA-PLEX [Suspect]
     Active Substance: PLASMA PROTEIN FRACTION (HUMAN)
     Dosage: UNK, QW
     Route: 065
  10. PLASMA-PLEX [Suspect]
     Active Substance: PLASMA PROTEIN FRACTION (HUMAN)
     Dosage: UNK, Q3W
     Route: 065
     Dates: start: 202007
  11. PLASMA-PLEX [Suspect]
     Active Substance: PLASMA PROTEIN FRACTION (HUMAN)
     Dosage: UNK
     Route: 065
     Dates: start: 202104
  12. PLASMA-PLEX [Suspect]
     Active Substance: PLASMA PROTEIN FRACTION (HUMAN)
     Dosage: UNK
     Route: 065
     Dates: start: 202104
  13. PLASMA-PLEX [Suspect]
     Active Substance: PLASMA PROTEIN FRACTION (HUMAN)
     Dosage: UNK
     Route: 065
     Dates: start: 202106, end: 202109
  14. CYCLOPHOSPHAMIDE [Suspect]
     Active Substance: CYCLOPHOSPHAMIDE
     Indication: Product used for unknown indication
     Dosage: 0.75 MG/M2
     Route: 065
     Dates: start: 201911
  15. CYCLOPHOSPHAMIDE [Suspect]
     Active Substance: CYCLOPHOSPHAMIDE
     Dosage: UNK
     Route: 065
     Dates: start: 20201222
  16. BORTEZOMIB [Suspect]
     Active Substance: BORTEZOMIB
     Indication: Product used for unknown indication
     Dosage: UNK
     Route: 065
     Dates: start: 202201
  17. METHYLPREDNISOLONE [Suspect]
     Active Substance: METHYLPREDNISOLONE
     Indication: Product used for unknown indication
     Dosage: UNK
     Route: 065
     Dates: start: 202106

REACTIONS (27)
  - Hyperhidrosis [Unknown]
  - Pain [Not Recovered/Not Resolved]
  - Muscle spasms [Recovering/Resolving]
  - Coordination abnormal [Not Recovered/Not Resolved]
  - Type 1 diabetes mellitus [Unknown]
  - Sepsis [Unknown]
  - Engraftment syndrome [Unknown]
  - Dysmetria [Unknown]
  - Cervical dysplasia [Unknown]
  - Nystagmus [Unknown]
  - Gait disturbance [Unknown]
  - Headache [Recovered/Resolved]
  - Musculoskeletal stiffness [Not Recovered/Not Resolved]
  - Ataxia [Not Recovered/Not Resolved]
  - Splenomegaly [Unknown]
  - Dyspnoea [Not Recovered/Not Resolved]
  - Muscle twitching [Not Recovered/Not Resolved]
  - Urinary tract infection [Unknown]
  - Rash [Unknown]
  - Hypervolaemia [Unknown]
  - Serum sickness [Unknown]
  - Weight decreased [Unknown]
  - Cognitive disorder [Unknown]
  - Oculomotor study abnormal [Unknown]
  - Abnormal behaviour [Unknown]
  - Myoclonus [Unknown]
  - Condition aggravated [Unknown]

NARRATIVE: CASE EVENT DATE: 20181001
